FAERS Safety Report 7404905-9 (Version None)
Quarter: 2011Q2

REPORT INFORMATION
  Report Type: 
  Country: None (occurrence: None)
  Receive Date: 20110411
  Receipt Date: 20110329
  Transmission Date: 20111010
  Serious: Yes (Hospitalization, Other)
  Sender: FDA-Public Use
  Company Number: US-JNJFOC-20110400049

PATIENT
  Sex: Male
  Weight: 117.94 kg

DRUGS (12)
  1. FENTANYL-100 [Suspect]
     Route: 062
  2. FENTANYL-100 [Suspect]
     Indication: CANCER PAIN
     Route: 062
  3. LABETALOL [Concomitant]
     Indication: HYPERTENSION
     Route: 048
  4. OXYCONTIN [Suspect]
     Indication: BREAKTHROUGH PAIN
     Dosage: EVERY 3 HOURS AS NEEDED
     Route: 048
  5. OXYCONTIN [Suspect]
     Route: 048
  6. OXYCONTIN [Suspect]
     Route: 048
  7. OXYCONTIN [Suspect]
     Route: 048
  8. OXYCONTIN [Suspect]
     Dosage: EVERY 3 HOURS AS NEEDED
     Route: 048
  9. CARDIZEM [Concomitant]
     Indication: HYPERTENSION
     Route: 048
  10. DURAGESIC [Suspect]
     Indication: ABDOMINAL PAIN
     Route: 062
  11. FENTANYL-100 [Suspect]
     Indication: CANCER PAIN
     Dosage: NDC # 0781-7244-55
     Route: 062
  12. OXYCONTIN [Suspect]
     Indication: CANCER PAIN
     Route: 048

REACTIONS (5)
  - APPLICATION SITE IRRITATION [None]
  - LYMPHATIC SYSTEM NEOPLASM [None]
  - HEPATIC NEOPLASM [None]
  - BILIARY NEOPLASM [None]
  - MALAISE [None]
